FAERS Safety Report 18478250 (Version 1)
Quarter: 2020Q4

REPORT INFORMATION
  Report Type: Spontaneous
  Country: NL (occurrence: NL)
  Receive Date: 20201109
  Receipt Date: 20201109
  Transmission Date: 20210114
  Serious: Yes (Other)
  Sender: FDA-Public Use
  Company Number: NL-TEVA-2020-NL-1845463

PATIENT
  Sex: Male
  Weight: 78 kg

DRUGS (3)
  1. MORFINE INJECTIE/INFUUS / BRAND NAME NOT SPECIFIED [Concomitant]
     Active Substance: MORPHINE
     Dosage: 10MG,
     Dates: start: 20200907, end: 20200907
  2. OXYCODON TABLET 5MG [Suspect]
     Active Substance: OXYCODONE
     Indication: PROCEDURAL PAIN
     Dosage: ONE TIME 5 MG. THERAPY END DATE: ASKED BUT UNKNOWN
     Dates: start: 20200907
  3. PARACETAMOL TABLET [Concomitant]
     Active Substance: ACETAMINOPHEN
     Dosage: 2X1000MG
     Dates: start: 20200907, end: 20200907

REACTIONS (1)
  - Respiratory disorder [Recovered/Resolved]
